FAERS Safety Report 7619053-2 (Version None)
Quarter: 2011Q3

REPORT INFORMATION
  Report Type: 
  Country: None (occurrence: None)
  Receive Date: 20110718
  Receipt Date: 20110705
  Transmission Date: 20111222
  Serious: Yes (Death)
  Sender: FDA-Public Use
  Company Number: AU-MYLANLABS-2011S1014366

PATIENT
  Age: 21 Year
  Sex: Male

DRUGS (10)
  1. METHAMPHETAMINE HYDROCHLORIDE [Suspect]
     Route: 065
  2. TEMAZEPAM [Suspect]
     Route: 065
  3. DIAZEPAM [Suspect]
     Route: 065
  4. METHAMPHETAMINE HYDROCHLORIDE [Suspect]
  5. SERTRALINE HYDROCHLORIDE [Suspect]
     Route: 065
  6. CODEINE SULFATE [Suspect]
     Route: 065
  7. FLUOXETINE [Suspect]
     Route: 065
  8. AMPHETAMINE SULFATE [Suspect]
     Route: 065
  9. KETAMINE HCL [Suspect]
     Route: 065
  10. MORPHINE [Suspect]
     Route: 065

REACTIONS (2)
  - TOXICITY TO VARIOUS AGENTS [None]
  - DRUG INTERACTION [None]
